FAERS Safety Report 5069031-5 (Version None)
Quarter: 2006Q3

REPORT INFORMATION
  Report Type: 
  Country: None (occurrence: None)
  Receive Date: 20060728
  Receipt Date: 20060710
  Transmission Date: 20061208
  Serious: Yes (Death)
  Sender: FDA-Public Use
  Company Number: GR200607001537

PATIENT
  Age: 60 Year
  Sex: Male
  Weight: 70 kg

DRUGS (2)
  1. OLANZAPINE [Suspect]
     Indication: BIPOLAR DISORDER
     Dosage: ORAL
     Route: 048
     Dates: end: 20050601
  2. LITHIUM (LITHIUM) [Concomitant]

REACTIONS (3)
  - ALCOHOL USE [None]
  - HEPATIC FAILURE [None]
  - RENAL FAILURE [None]
